FAERS Safety Report 22879264 (Version 3)
Quarter: 2024Q3

REPORT INFORMATION
  Report Type: Report from Study
  Country: JP (occurrence: JP)
  Receive Date: 20230829
  Receipt Date: 20240809
  Transmission Date: 20241016
  Serious: Yes (Death, Other)
  Sender: BAYER
  Company Number: JP-BAYER-2023A119664

PATIENT
  Age: 31 Year
  Sex: Male
  Weight: 58.1 kg

DRUGS (3)
  1. VITRAKVI [Suspect]
     Active Substance: LAROTRECTINIB
     Indication: Congenital fibrosarcoma
     Dosage: 100 MG, BID
     Dates: start: 20230531, end: 20230809
  2. VITRAKVI [Suspect]
     Active Substance: LAROTRECTINIB
     Indication: NTRK gene fusion positive
  3. VITRAKVI [Suspect]
     Active Substance: LAROTRECTINIB
     Indication: Malignant neoplasm progression

REACTIONS (3)
  - Congenital fibrosarcoma [Fatal]
  - Metastases to lung [Not Recovered/Not Resolved]
  - Hepatic function abnormal [Recovered/Resolved]

NARRATIVE: CASE EVENT DATE: 20230726
